FAERS Safety Report 7236279-0 (Version None)
Quarter: 2011Q1

REPORT INFORMATION
  Report Type: 
  Country: None (occurrence: None)
  Receive Date: 20110120
  Receipt Date: 20110110
  Transmission Date: 20110831
  Serious: Yes (Hospitalization, Disabling, Other)
  Sender: FDA-Public Use
  Company Number: US-MERCK-0910USA03486

PATIENT
  Age: 51 Year
  Sex: Female
  Weight: 70 kg

DRUGS (12)
  1. FOSAMAX [Suspect]
     Route: 048
     Dates: start: 20010801, end: 20071220
  2. FOSAMAX PLUS D [Suspect]
     Indication: OSTEOPENIA
     Route: 048
     Dates: start: 20060308, end: 20071029
  3. SYNTHROID [Concomitant]
     Indication: THYROIDECTOMY
     Route: 065
     Dates: start: 19760101
  4. FOSAMAX PLUS D [Suspect]
     Indication: OSTEOPOROSIS
     Route: 048
     Dates: start: 20060308, end: 20071029
  5. FOSAMAX [Suspect]
     Route: 048
     Dates: end: 20070607
  6. AMBIEN [Concomitant]
     Indication: SLEEP DISORDER THERAPY
     Route: 065
     Dates: start: 19930101
  7. FOSAMAX [Suspect]
     Route: 048
     Dates: start: 19970801, end: 20000101
  8. FOSAMAX [Suspect]
     Indication: OSTEOPOROSIS
     Route: 048
     Dates: start: 19980101, end: 20010109
  9. FOSAMAX [Suspect]
     Route: 048
     Dates: end: 20070607
  10. FOSAMAX [Suspect]
     Route: 048
     Dates: start: 20010801, end: 20071220
  11. FOSAMAX [Suspect]
     Route: 048
     Dates: start: 19970801, end: 20000101
  12. FOSAMAX [Suspect]
     Indication: OSTEOPENIA
     Route: 048
     Dates: start: 19980101, end: 20010109

REACTIONS (32)
  - TIBIA FRACTURE [None]
  - GAIT DISTURBANCE [None]
  - BONE LESION [None]
  - INTERVERTEBRAL DISC DEGENERATION [None]
  - PYREXIA [None]
  - BONE DISORDER [None]
  - SKIN CANCER [None]
  - STRESS FRACTURE [None]
  - GASTROOESOPHAGEAL REFLUX DISEASE [None]
  - MITRAL VALVE PROLAPSE [None]
  - INSOMNIA [None]
  - RIB FRACTURE [None]
  - LOW TURNOVER OSTEOPATHY [None]
  - OSTEOMA [None]
  - MUSCULOSKELETAL DISORDER [None]
  - FEMUR FRACTURE [None]
  - SYNOVIAL CYST [None]
  - DEPRESSION [None]
  - BACK PAIN [None]
  - ADVERSE EVENT [None]
  - FIBULA FRACTURE [None]
  - MUSCULOSKELETAL CHEST PAIN [None]
  - NASAL DISORDER [None]
  - FEMALE ORGASMIC DISORDER [None]
  - BURSITIS [None]
  - PLANTAR FASCIITIS [None]
  - GASTROINTESTINAL DISORDER [None]
  - CONCUSSION [None]
  - METASTASES TO BONE [None]
  - PALPITATIONS [None]
  - ARTHRALGIA [None]
  - LIBIDO DECREASED [None]
